FAERS Safety Report 20574686 (Version 2)
Quarter: 2022Q1

REPORT INFORMATION
  Report Type: Spontaneous
  Country: CN (occurrence: CN)
  Receive Date: 20220309
  Receipt Date: 20220310
  Transmission Date: 20220423
  Serious: Yes (Life-Threatening, Hospitalization, Other)
  Sender: FDA-Public Use
  Company Number: CN-BAXTER-2022BAX004699

PATIENT
  Age: 6 Year
  Sex: Female
  Weight: 21 kg

DRUGS (13)
  1. CYCLOPHOSPHAMIDE [Suspect]
     Active Substance: CYCLOPHOSPHAMIDE
     Indication: Bone marrow conditioning regimen
     Dosage: CYCLOPHOSPHAMIDE (950 MG) + NS (250 ML)
     Route: 041
     Dates: start: 20220212, end: 20220215
  2. SODIUM CHLORIDE [Suspect]
     Active Substance: SODIUM CHLORIDE
     Indication: Medication dilution
     Dosage: BUSULFAN (17.5MG) + NS (100ML )
     Route: 041
     Dates: start: 20220208, end: 20220208
  3. SODIUM CHLORIDE [Suspect]
     Active Substance: SODIUM CHLORIDE
     Dosage: BUSULFAN (15MG) + NS (100ML )
     Route: 041
     Dates: start: 20220209, end: 20220211
  4. SODIUM CHLORIDE [Suspect]
     Active Substance: SODIUM CHLORIDE
     Dosage: FLUDARABINE (25MG) + NS (100ML)
     Route: 041
     Dates: start: 20220210, end: 20220214
  5. SODIUM CHLORIDE [Suspect]
     Active Substance: SODIUM CHLORIDE
     Dosage: CYCLOPHOSPHAMIDE (950 MG) + NS (250 ML)
     Route: 041
     Dates: start: 20220212, end: 20220215
  6. DEXTROSE [Suspect]
     Active Substance: DEXTROSE
     Indication: Medication dilution
     Dosage: RABBIT ANTI-HUMAN THYMOCYTE IMMUNOGLOBULIN (25 MG) + 5% GS (250 ML)
     Route: 041
     Dates: start: 20220212, end: 20220213
  7. DEXTROSE [Suspect]
     Active Substance: DEXTROSE
     Dosage: RABBIT ANTI-HUMAN THYMOCYTE IMMUNOGLOBULIN (50 MG) + 5% GS (250 ML)
     Route: 041
     Dates: start: 20220214, end: 20220215
  8. FLUDARA [Suspect]
     Active Substance: FLUDARABINE PHOSPHATE
     Indication: Bone marrow conditioning regimen
     Dosage: FLUDARABINE (25MG) + NS (100ML)
     Route: 041
     Dates: start: 20220210, end: 20220214
  9. BUSULFAN [Suspect]
     Active Substance: BUSULFAN
     Indication: Bone marrow conditioning regimen
     Dosage: BUSULFAN (17.5MG) + NS (100ML)
     Route: 041
     Dates: start: 20220208, end: 20220208
  10. BUSULFAN [Suspect]
     Active Substance: BUSULFAN
     Dosage: BUSULFAN (15MG) + NS (100ML)
     Route: 041
     Dates: start: 20220209, end: 20220211
  11. THYMOGLOBULINE [Suspect]
     Active Substance: LAPINE T-LYMPHOCYTE IMMUNE GLOBULIN
     Indication: Bone marrow conditioning regimen
     Dosage: RABBIT ANTI-HUMAN THYMOCYTE IMMUNOGLOBULIN (25 MG) + 5% GS (250 ML)
     Route: 041
     Dates: start: 20220212, end: 20220213
  12. THYMOGLOBULINE [Suspect]
     Active Substance: LAPINE T-LYMPHOCYTE IMMUNE GLOBULIN
     Dosage: RABBIT ANTI-HUMAN THYMOCYTE IMMUNOGLOBULIN (25 MG) + 5% GS (250 ML)
     Route: 041
     Dates: start: 20220214, end: 20220215
  13. Atuomolan [Concomitant]
     Indication: Supportive care
     Dosage: DOSAGE FORM: TABLETS
     Route: 048
     Dates: start: 20220208, end: 20220220

REACTIONS (3)
  - Hepatic function abnormal [Recovering/Resolving]
  - Myelosuppression [Recovering/Resolving]
  - Drug-induced liver injury [Recovering/Resolving]

NARRATIVE: CASE EVENT DATE: 20220217
